FAERS Safety Report 14847201 (Version 14)
Quarter: 2020Q1

REPORT INFORMATION
  Report Type: Report from Study
  Country: CA (occurrence: CA)
  Receive Date: 20180504
  Receipt Date: 20200127
  Transmission Date: 20200409
  Serious: Yes (Death, Hospitalization, Other)
  Sender: FDA-Public Use
  Company Number: PHHY2018CA058308

PATIENT
  Age: 77 Year
  Sex: Female

DRUGS (4)
  1. SANDOSTATIN LAR DEPOT [Suspect]
     Active Substance: OCTREOTIDE ACETATE
     Dosage: 30 MG, Q2W
     Route: 030
  2. SANDOSTATIN LAR DEPOT [Suspect]
     Active Substance: OCTREOTIDE ACETATE
     Indication: CARCINOID TUMOUR
     Dosage: 20 MG, QMO (EVERY 4 WEEKS)
     Route: 030
     Dates: start: 20171227
  3. SANDOSTATIN LAR DEPOT [Suspect]
     Active Substance: OCTREOTIDE ACETATE
     Dosage: 30 MG, Q3W (EVERY 3 WEEKS)
     Route: 030
  4. AFINITOR [Concomitant]
     Active Substance: EVEROLIMUS
     Indication: PRODUCT USED FOR UNKNOWN INDICATION
     Dosage: 2.5 MG
     Route: 065
     Dates: start: 2019

REACTIONS (30)
  - Second primary malignancy [Not Recovered/Not Resolved]
  - Oedema [Unknown]
  - Pain [Unknown]
  - Headache [Unknown]
  - Gait disturbance [Unknown]
  - Hyperkalaemia [Unknown]
  - Pleurisy [Unknown]
  - Blood pressure systolic increased [Unknown]
  - Decreased appetite [Unknown]
  - Spinal pain [Recovering/Resolving]
  - Inappropriate schedule of product administration [Unknown]
  - Malignant neoplasm progression [Fatal]
  - Lung neoplasm malignant [Not Recovered/Not Resolved]
  - Radiation pneumonitis [Unknown]
  - Fluid retention [Unknown]
  - Dry mouth [Unknown]
  - Nuchal rigidity [Unknown]
  - Chest pain [Unknown]
  - Blood calcium increased [Unknown]
  - Lethargy [Unknown]
  - Lymphoma [Unknown]
  - Neck pain [Unknown]
  - Anxiety [Unknown]
  - Blood potassium decreased [Unknown]
  - Asthenia [Unknown]
  - Metastases to bone [Unknown]
  - Dyspnoea [Unknown]
  - Musculoskeletal stiffness [Unknown]
  - Contusion [Unknown]
  - Carcinoid tumour [Fatal]

NARRATIVE: CASE EVENT DATE: 2018
